FAERS Safety Report 16909915 (Version 2)
Quarter: 2019Q4

REPORT INFORMATION
  Report Type: Spontaneous
  Country: JP (occurrence: JP)
  Receive Date: 20191011
  Receipt Date: 20191101
  Transmission Date: 20200122
  Serious: Yes (Hospitalization)
  Sender: FDA-Public Use
  Company Number: JP-ELI_LILLY_AND_COMPANY-JP201909011822AA

PATIENT
  Age: 57 Year
  Sex: Female

DRUGS (4)
  1. PROGRAF [Concomitant]
     Active Substance: TACROLIMUS
     Dosage: 2 MG
  2. OLUMIANT [Suspect]
     Active Substance: BARICITINIB
     Indication: RHEUMATOID ARTHRITIS
     Dosage: 4 MG, DAILY
     Route: 048
     Dates: start: 20180405, end: 20190923
  3. CELECOX [Concomitant]
     Active Substance: CELECOXIB
     Dosage: 100 MG
  4. RHEUMATREX [Concomitant]
     Active Substance: METHOTREXATE SODIUM
     Indication: RHEUMATOID ARTHRITIS
     Dosage: 8 MG
     Route: 048

REACTIONS (2)
  - Herpes zoster [Recovered/Resolved with Sequelae]
  - Herpes ophthalmic [Recovered/Resolved with Sequelae]

NARRATIVE: CASE EVENT DATE: 20190924
